FAERS Safety Report 5360932-7 (Version None)
Quarter: 2007Q2

REPORT INFORMATION
  Report Type: 
  Country: None (occurrence: None)
  Receive Date: 20070618
  Receipt Date: 20070614
  Transmission Date: 20071010
  Serious: Yes (Death)
  Sender: FDA-Public Use
  Company Number: US-ASTRAZENECA-2007UW08027

PATIENT
  Age: 6425 Day
  Sex: Female
  Weight: 72.7 kg

DRUGS (2)
  1. SEROQUEL [Suspect]
     Indication: BIPOLAR I DISORDER
     Route: 048
     Dates: start: 20070329, end: 20070409
  2. SEROQUEL [Suspect]
     Route: 048
     Dates: start: 20070410

REACTIONS (2)
  - INSOMNIA [None]
  - OVERDOSE [None]
